FAERS Safety Report 4956925-1 (Version None)
Quarter: 2006Q1

REPORT INFORMATION
  Report Type: 
  Country: None (occurrence: None)
  Receive Date: 20060127
  Receipt Date: 20050401
  Transmission Date: 20060701
  Serious: Yes (Hospitalization)
  Sender: FDA-Public Use
  Company Number: 05-04-0534

PATIENT
  Age: 48 Year
  Sex: Male

DRUGS (4)
  1. CLOZAPINE [Suspect]
     Indication: BIPOLAR DISORDER
     Dosage: 200MG QAM, ORAL
     Route: 048
     Dates: start: 19991101, end: 20050331
  2. CLOZAPINE [Suspect]
     Indication: SCHIZOPHRENIA
     Dosage: 200MG QAM, ORAL
     Route: 048
     Dates: start: 19991101, end: 20050331
  3. ZOLOFT [Suspect]
     Indication: BIPOLAR DISORDER
     Dosage: SEE IMAGE
     Route: 048
     Dates: start: 19991101, end: 20050331
  4. ZOLOFT [Suspect]
     Indication: BIPOLAR DISORDER
     Dosage: 200MG QM

REACTIONS (2)
  - DRUG LEVEL INCREASED [None]
  - PNEUMONIA [None]
